FAERS Safety Report 6072873-0 (Version None)
Quarter: 2009Q1

REPORT INFORMATION
  Report Type: 
  Country: None (occurrence: None)
  Receive Date: 20090205
  Receipt Date: 20090126
  Transmission Date: 20090719
  Serious: Yes (Hospitalization)
  Sender: FDA-Public Use
  Company Number: 2009AP000353

PATIENT
  Age: 72 Year
  Sex: Female

DRUGS (13)
  1. ALENDRONATE SODIUM [Suspect]
     Indication: OSTEOARTHRITIS
  2. CALCICHEW (CALCIUM CARBONATE) [Suspect]
     Indication: OSTEOARTHRITIS
     Dosage: 1 DF; QD PO
     Route: 048
  3. CARBAMAZEPINE [Suspect]
     Indication: EPILEPSY
     Dosage: 200 MG; TID; PO
     Route: 048
  4. CODEINE PHOSPHATE (CODEINE PHOSPHATE) [Suspect]
     Indication: MIGRAINE
     Dosage: PO
     Route: 048
  5. GAVISCON [Suspect]
     Indication: ILL-DEFINED DISORDER
     Dosage: PO
     Route: 048
  6. PANTOPRAZOLE SODIUM [Suspect]
     Indication: ILL-DEFINED DISORDER
     Dosage: 20 MG; QD PO
     Route: 048
  7. PARACETAMOL (PARACETAMOL) [Suspect]
     Indication: MIGRAINE
     Dosage: PO
     Route: 048
  8. RISEDRONATE SODIUM [Suspect]
     Indication: OSTEOARTHRITIS
     Dosage: 35 MG; QD PO
     Route: 048
  9. SERETIDE (SERETIDE MITE) [Suspect]
     Indication: ASTHMA
     Dosage: 2 DF; BID INH
     Route: 055
     Dates: start: 20050101
  10. LEVOTHYROXINE SODIUM [Suspect]
     Indication: HYPOTHYROIDISM
     Dosage: 100 ?G; QD PO
     Route: 048
  11. VENTOLIN [Suspect]
     Indication: ASTHMA
     Dosage: INH
     Route: 055
  12. WARFARIN SODIUM [Suspect]
     Indication: DEEP VEIN THROMBOSIS
     Dosage: QD PO
     Route: 048
  13. ZOLMITRIPTAN (ZOLMITRIPTAN) [Suspect]
     Indication: MIGRAINE
     Dosage: PO
     Route: 048

REACTIONS (3)
  - CEREBROVASCULAR ACCIDENT [None]
  - COUGH [None]
  - DYSPNOEA [None]
